FAERS Safety Report 10636564 (Version 1)
Quarter: 2014Q4

REPORT INFORMATION
  Report Type: Spontaneous
  Country: US (occurrence: None)
  Receive Date: 20141203
  Receipt Date: 20141203
  Transmission Date: 20150529
  Serious: No
  Sender: FDA-Public Use
  Company Number: None

PATIENT
  Sex: Female
  Weight: 179 kg

DRUGS (1)
  1. LAMOTRIGINE GENERIC [Suspect]
     Active Substance: LAMOTRIGINE

REACTIONS (1)
  - Product substitution issue [None]
